FAERS Safety Report 26091653 (Version 1)
Quarter: 2025Q4

REPORT INFORMATION
  Report Type: Report from Study
  Country: GB (occurrence: GB)
  Receive Date: 20251126
  Receipt Date: 20251126
  Transmission Date: 20260117
  Serious: Yes (Hospitalization)
  Sender: AMGEN
  Company Number: GB-AMGEN-GBRSL2025189839

PATIENT
  Sex: Female

DRUGS (11)
  1. USTEKINUMAB [Suspect]
     Active Substance: USTEKINUMAB
     Indication: Crohn^s disease
     Dosage: 162 MILLIGRAM, QWK
     Route: 058
     Dates: start: 202412
  2. USTEKINUMAB [Suspect]
     Active Substance: USTEKINUMAB
     Indication: Rheumatoid arthritis
     Dosage: 90 MILLIGRAM, Q8WK
     Route: 058
     Dates: start: 2025
  3. AMITRIPTYLINE [Concomitant]
     Active Substance: AMITRIPTYLINE
  4. OMEPRAZOLE [Concomitant]
     Active Substance: OMEPRAZOLE
  5. FOLIC ACID [Concomitant]
     Active Substance: FOLIC ACID
  6. DIAZEPAM [Concomitant]
     Active Substance: DIAZEPAM
  7. MIRTAZAPINE [Concomitant]
     Active Substance: MIRTAZAPINE
  8. ONDANSETRON [Concomitant]
     Active Substance: ONDANSETRON
  9. METOCLOPRAMIDE [Concomitant]
     Active Substance: METOCLOPRAMIDE
  10. CALCIUM [Concomitant]
     Active Substance: CALCIUM
  11. SODIUM SULFATE [Concomitant]
     Active Substance: SODIUM SULFATE

REACTIONS (1)
  - Crohn^s disease [Unknown]
